FAERS Safety Report 6061298-X (Version None)
Quarter: 2009Q1

REPORT INFORMATION
  Report Type: 
  Country: None (occurrence: None)
  Receive Date: 20090202
  Receipt Date: 20090123
  Transmission Date: 20090719
  Serious: Yes (Other)
  Sender: FDA-Public Use
  Company Number: KR-MERCK-0901KOR00031

PATIENT
  Age: 50 Year
  Sex: Female

DRUGS (1)
  1. FOSAMAX PLUS D [Suspect]
     Route: 048
     Dates: start: 20060101

REACTIONS (2)
  - FEMUR FRACTURE [None]
  - OSTEONECROSIS [None]
